FAERS Safety Report 22218234 (Version 1)
Quarter: 2023Q2

REPORT INFORMATION
  Report Type: Spontaneous
  Country: US (occurrence: US)
  Receive Date: 20230417
  Receipt Date: 20230417
  Transmission Date: 20230722
  Serious: No
  Sender: FDA-Public Use
  Company Number: US-drreddys-SPO/USA/23/0163349

PATIENT
  Age: 20 Year
  Weight: 65.7 kg

DRUGS (1)
  1. ZENATANE [Suspect]
     Active Substance: ISOTRETINOIN
     Indication: Acne
     Dates: start: 20230321

REACTIONS (2)
  - Chest pain [Unknown]
  - Abdominal pain lower [Unknown]
